FAERS Safety Report 6166086-1 (Version None)
Quarter: 2009Q2

REPORT INFORMATION
  Report Type: 
  Country: None (occurrence: None)
  Receive Date: 20090424
  Receipt Date: 20090423
  Transmission Date: 20091009
  Serious: Yes (Life-Threatening, Hospitalization)
  Sender: FDA-Public Use
  Company Number: AU-B.I. PHARMACEUTICALS,INC./RIDGEFIELD-2009-AU-00168AU

PATIENT
  Sex: Male
  Weight: 75 kg

DRUGS (5)
  1. MICARDIS [Suspect]
     Indication: ESSENTIAL HYPERTENSION
     Dosage: 40MG
  2. ESCITALOPRAM [Suspect]
     Indication: DEPRESSION
     Dosage: 10MG
     Route: 048
     Dates: start: 20080815, end: 20080908
  3. COLGOUT [Concomitant]
     Dosage: 500MCG
     Route: 048
     Dates: end: 20080908
  4. NULYTELY [Concomitant]
  5. MYLANTA [Concomitant]

REACTIONS (2)
  - HYPONATRAEMIA [None]
  - MALAISE [None]
